FAERS Safety Report 18417356 (Version 1)
Quarter: 2020Q4

REPORT INFORMATION
  Report Type: Spontaneous
  Country: US (occurrence: US)
  Receive Date: 20201022
  Receipt Date: 20201022
  Transmission Date: 20210114
  Serious: No
  Sender: FDA-Public Use
  Company Number: 2020SGN02677

PATIENT
  Sex: Female

DRUGS (1)
  1. TUKYSA [Suspect]
     Active Substance: TUCATINIB
     Indication: BREAST CANCER FEMALE
     Dosage: UNK UNK, BID

REACTIONS (11)
  - Skin discolouration [Unknown]
  - Diarrhoea [Unknown]
  - Product dose omission issue [Unknown]
  - Visual impairment [Unknown]
  - Arthralgia [Unknown]
  - Petechiae [Unknown]
  - Balance disorder [Unknown]
  - Metastases to central nervous system [Unknown]
  - Dry mouth [Unknown]
  - Dry skin [Unknown]
  - Vision blurred [Unknown]
